FAERS Safety Report 6974592-2 (Version None)
Quarter: 2010Q3

REPORT INFORMATION
  Report Type: 
  Country: None (occurrence: None)
  Receive Date: 20100909
  Receipt Date: 20100831
  Transmission Date: 20110219
  Serious: Yes (Other)
  Sender: FDA-Public Use
  Company Number: US-AMGEN-KDL434981

PATIENT
  Age: 45 Year
  Sex: Female

DRUGS (3)
  1. VECTIBIX [Suspect]
     Indication: COLORECTAL CANCER
  2. CAPECITABINE [Concomitant]
  3. IRINOTECAN HCL [Concomitant]
     Route: 061

REACTIONS (2)
  - FOLLICULITIS [None]
  - RASH PUSTULAR [None]
